FAERS Safety Report 5214951-1 (Version None)
Quarter: 2007Q1

REPORT INFORMATION
  Report Type: 
  Country: None (occurrence: None)
  Receive Date: 20070119
  Receipt Date: 20070119
  Transmission Date: 20070707
  Serious: Yes (Hospitalization)
  Sender: FDA-Public Use
  Company Number: None

PATIENT
  Age: 82 Year
  Sex: Female
  Weight: 54 kg

DRUGS (1)
  1. IRON SUCROSE [Suspect]
     Indication: IRON DEFICIENCY ANAEMIA
     Dosage: 500MG X1 IV
     Route: 042
     Dates: start: 20060725

REACTIONS (6)
  - BRADYCARDIA [None]
  - CARDIO-RESPIRATORY ARREST [None]
  - HYPERHIDROSIS [None]
  - HYPOTENSION [None]
  - RASH [None]
  - SOMNOLENCE [None]
